FAERS Safety Report 17371853 (Version 1)
Quarter: 2020Q1

REPORT INFORMATION
  Report Type: Spontaneous
  Country: FR (occurrence: FR)
  Receive Date: 20200205
  Receipt Date: 20200205
  Transmission Date: 20200409
  Serious: Yes (Other)
  Sender: FDA-Public Use
  Company Number: FR-MYLANLABS-2020M1012842

PATIENT
  Age: 41 Year
  Sex: Female

DRUGS (3)
  1. TRAMADOL. [Suspect]
     Active Substance: TRAMADOL
     Indication: PAIN
     Dosage: 400 MG, QD (150MG LE MATIN ET 200MG LE SOIR)
     Route: 065
     Dates: start: 20180212, end: 20180818
  2. SERETIDE [Concomitant]
     Active Substance: FLUTICASONE PROPIONATE\SALMETEROL XINAFOATE
     Indication: ASTHMA
     Dosage: UNK
     Route: 065
     Dates: end: 20190818
  3. SPIRIVA [Concomitant]
     Active Substance: TIOTROPIUM BROMIDE MONOHYDRATE
     Indication: ASTHENIA
     Dosage: UNK
     Route: 065
     Dates: end: 20180818

REACTIONS (6)
  - Maternal exposure during pregnancy [Unknown]
  - Perineal fistula [Not Recovered/Not Resolved]
  - Foetal malnutrition [Recovering/Resolving]
  - Withdrawal syndrome [Recovered/Resolved]
  - Foetal growth restriction [Recovering/Resolving]
  - Low birth weight baby [Recovering/Resolving]

NARRATIVE: CASE EVENT DATE: 20180818
